FAERS Safety Report 10437396 (Version 1)
Quarter: 2014Q3

REPORT INFORMATION
  Report Type: Spontaneous
  Country: US (occurrence: US)
  Receive Date: 20140908
  Receipt Date: 20140908
  Transmission Date: 20150326
  Serious: No
  Sender: FDA-Public Use
  Company Number: US-BRISTOL-MYERS SQUIBB COMPANY-20933834

PATIENT
  Age: 41 Year
  Sex: Male

DRUGS (4)
  1. PAROXETINE [Concomitant]
     Active Substance: PAROXETINE\PAROXETINE HYDROCHLORIDE
  2. ABILIFY [Suspect]
     Active Substance: ARIPIPRAZOLE
     Indication: DEPRESSION
     Dosage: 1 DF= 10-30 MG.
     Route: 048
     Dates: end: 20140529
  3. CLONAZEPAM. [Concomitant]
     Active Substance: CLONAZEPAM
  4. ABILIFY [Suspect]
     Active Substance: ARIPIPRAZOLE
     Indication: ANXIETY
     Dosage: 1 DF= 10-30 MG.
     Route: 048
     Dates: end: 20140529

REACTIONS (2)
  - Anxiety [Unknown]
  - Drug dose omission [Unknown]
